FAERS Safety Report 9066237 (Version 2)
Quarter: 2013Q2

REPORT INFORMATION
  Report Type: Report from Study
  Country: CA (occurrence: CA)
  Receive Date: 20130214
  Receipt Date: 20130506
  Transmission Date: 20140414
  Serious: Yes (Death, Other)
  Sender: FDA-Public Use
  Company Number: CA-CELGENEUS-028-C4047-13020067

PATIENT
  Age: 67 Year
  Sex: Female
  Weight: 58 kg

DRUGS (28)
  1. CC-4047 [Suspect]
     Indication: PLASMA CELL MYELOMA
     Dosage: 4 MILLIGRAM
     Route: 048
     Dates: start: 20120720, end: 20121020
  2. REVLIMID [Suspect]
     Indication: PLASMA CELL MYELOMA
     Route: 048
     Dates: start: 20100715, end: 20110120
  3. DEXAMETHASONE [Suspect]
     Indication: PLASMA CELL MYELOMA
     Dosage: 20-40MG
     Route: 048
     Dates: start: 20100407, end: 20100623
  4. DEXAMETHASONE [Suspect]
     Dosage: 40 MILLIGRAM
     Route: 065
     Dates: start: 20120721, end: 20121013
  5. APO VALACYCLOVIR [Concomitant]
     Indication: PROPHYLAXIS
     Dosage: 1000 MILLIGRAM
     Route: 065
     Dates: start: 20090508
  6. APO VALACYCLOVIR [Concomitant]
     Indication: VIRAL INFECTION
  7. URSODIOL [Concomitant]
     Indication: GRAFT VERSUS HOST DISEASE IN LIVER
     Dosage: 1000 MILLIGRAM
     Route: 065
     Dates: start: 20090417
  8. CALCITE D [Concomitant]
     Indication: SUPPLEMENTATION THERAPY
     Dosage: 1000 MILLIGRAM
     Route: 065
     Dates: start: 2009
  9. ASAPHEN [Concomitant]
     Indication: THROMBOSIS PROPHYLAXIS
     Dosage: 80 MILLIGRAM
     Route: 065
     Dates: start: 20100714
  10. PANTOPRAZOLE [Concomitant]
     Indication: GASTROOESOPHAGEAL REFLUX PROPHYLAXIS
     Dosage: 80 MILLIGRAM
     Route: 065
     Dates: start: 20071123
  11. ROSUVASTATINE [Concomitant]
     Indication: PROPHYLAXIS
     Dosage: 10 MILLIGRAM
     Route: 065
     Dates: start: 200905
  12. SENNOSIDES [Concomitant]
     Indication: CONSTIPATION
     Dosage: 17.2 MILLIGRAM
     Route: 065
     Dates: start: 20090420
  13. DOCUSATE SODIUM [Concomitant]
     Indication: CONSTIPATION
     Dosage: 200 MILLIGRAM
     Route: 065
     Dates: start: 20090420
  14. CONJUGATED ESTROGENS [Concomitant]
     Indication: VULVOVAGINAL DRYNESS
     Dosage: .625 MILLIGRAM
     Route: 065
     Dates: start: 20120212
  15. HYDROCORTISONE [Concomitant]
     Indication: ADRENAL INSUFFICIENCY
     Dosage: 20 MILLIGRAM
     Route: 065
     Dates: start: 2009
  16. HYDROCORTISONE [Concomitant]
     Dosage: 10 MILLIGRAM
     Route: 065
     Dates: start: 2009
  17. LACTULOSE [Concomitant]
     Indication: CONSTIPATION
     Dosage: 2001 MILLIGRAM
     Route: 065
     Dates: start: 20090422
  18. PAMIDRONATE SODIUM [Concomitant]
     Indication: SUPPORTIVE CARE
     Dosage: 90 MILLIGRAM
     Route: 065
     Dates: start: 20100429
  19. FILGRASTIM [Concomitant]
     Indication: NEUTROPENIA
     Dosage: 1 MILLILITER
     Route: 065
     Dates: start: 2011
  20. GAMMAGLOBULINE [Concomitant]
     Indication: INFECTION PROPHYLAXIS
     Dosage: .6667 GRAM
     Route: 065
     Dates: start: 20111120
  21. ZOPICLONE [Concomitant]
     Indication: INSOMNIA
     Dosage: 7.5 MILLIGRAM
     Route: 065
     Dates: start: 2007
  22. CIPROFLOXACINE [Concomitant]
     Indication: URINARY TRACT INFECTION
     Dosage: 1000 MILLIGRAM
     Route: 048
     Dates: start: 20120803, end: 20120806
  23. CIPROFLOXACINE [Concomitant]
     Dosage: 1000 MILLIGRAM
     Route: 048
     Dates: start: 20120813, end: 20120819
  24. SEPTRA [Concomitant]
     Indication: URINARY TRACT INFECTION
     Dosage: 160-600MG
     Route: 048
     Dates: start: 20120905, end: 20120911
  25. CLAVULIN [Concomitant]
     Indication: URINARY TRACT INFECTION
     Dosage: 1750 MILLIGRAM
     Route: 048
     Dates: start: 20120928, end: 20121007
  26. AVELOX [Concomitant]
     Indication: PYREXIA
     Dosage: 400 MILLIGRAM
     Route: 048
     Dates: start: 20121016, end: 20121022
  27. MICROBID [Concomitant]
     Indication: INFECTION PROPHYLAXIS
     Dosage: 100 MILLIGRAM
     Route: 048
     Dates: start: 20120909
  28. ACETAMINOPHEN [Concomitant]
     Indication: PAIN
     Dosage: 325 MILLIGRAM
     Route: 048
     Dates: start: 2008

REACTIONS (1)
  - Lung adenocarcinoma stage IV [Fatal]
